FAERS Safety Report 9795440 (Version 1)
Quarter: 2014Q1

REPORT INFORMATION
  Report Type: Spontaneous
  Country: US (occurrence: US)
  Receive Date: 20140103
  Receipt Date: 20140103
  Transmission Date: 20141002
  Serious: Yes (Hospitalization)
  Sender: FDA-Public Use
  Company Number: US-JNJFOC-20131217909

PATIENT
  Age: 86 Year
  Sex: Female

DRUGS (4)
  1. XARELTO [Suspect]
     Indication: CEREBROVASCULAR ACCIDENT PROPHYLAXIS
     Route: 048
     Dates: start: 2011
  2. XARELTO [Suspect]
     Indication: ATRIAL FIBRILLATION
     Route: 048
     Dates: start: 2011
  3. ATENOLOL [Concomitant]
     Indication: HYPERTENSION
     Route: 065
  4. DIGOXIN [Concomitant]
     Route: 065

REACTIONS (4)
  - Cerebrovascular accident [Unknown]
  - Monoplegia [Unknown]
  - International normalised ratio increased [Unknown]
  - Treatment noncompliance [Unknown]
